FAERS Safety Report 7714278-X (Version None)
Quarter: 2011Q3

REPORT INFORMATION
  Report Type: 
  Country: None (occurrence: None)
  Receive Date: 20110829
  Receipt Date: 20110818
  Transmission Date: 20111222
  Serious: No
  Sender: FDA-Public Use
  Company Number: US-BIOGENIDEC-2011BI031984

PATIENT
  Age: 43 Year
  Sex: Male

DRUGS (3)
  1. TYSABRI [Suspect]
     Route: 042
     Dates: start: 20010126
  2. TYSABRI [Suspect]
     Route: 042
     Dates: start: 20070308, end: 20070524
  3. TYSABRI [Suspect]
     Indication: MULTIPLE SCLEROSIS
     Route: 042
     Dates: start: 20080514

REACTIONS (8)
  - HYPOAESTHESIA [None]
  - COGNITIVE DISORDER [None]
  - VISION BLURRED [None]
  - MOBILITY DECREASED [None]
  - BACK PAIN [None]
  - BLADDER DISORDER [None]
  - DEPRESSION [None]
  - MIGRAINE [None]
